FAERS Safety Report 9410701 (Version 1)
Quarter: 2013Q3

REPORT INFORMATION
  Report Type: Report from Study
  Country: US (occurrence: US)
  Receive Date: 20130719
  Receipt Date: 20130719
  Transmission Date: 20140515
  Serious: Yes (Other)
  Sender: FDA-Public Use
  Company Number: US-ROCHE-1250698

PATIENT
  Sex: Female

DRUGS (10)
  1. XOLAIR [Suspect]
     Indication: ASTHMA
     Route: 058
     Dates: start: 201110, end: 201303
  2. XOLAIR [Suspect]
     Indication: RHINITIS ALLERGIC
  3. FEXOFENADINE [Concomitant]
     Route: 048
  4. SPIRIVA [Concomitant]
     Route: 055
  5. ADVAIR [Concomitant]
     Route: 055
  6. SINGULAIR [Concomitant]
     Route: 048
  7. ALBUTEROL [Concomitant]
     Dosage: AS NEEDED
     Route: 055
  8. NEXIUM [Concomitant]
     Route: 048
  9. FLONASE [Concomitant]
     Route: 045
  10. XANAX [Concomitant]
     Route: 048

REACTIONS (6)
  - Dyspnoea exertional [Unknown]
  - Blood immunoglobulin E increased [Unknown]
  - Gastrooesophageal reflux disease [Unknown]
  - Renal failure chronic [Unknown]
  - Angioedema [Unknown]
  - Anxiety [Unknown]
